FAERS Safety Report 5911480-4 (Version None)
Quarter: 2008Q4

REPORT INFORMATION
  Report Type: 
  Country: None (occurrence: None)
  Receive Date: 20081007
  Receipt Date: 20080926
  Transmission Date: 20090506
  Serious: Yes (Hospitalization)
  Sender: FDA-Public Use
  Company Number: FR-PFIZER INC-2008081873

PATIENT
  Sex: Female

DRUGS (6)
  1. XANAX [Suspect]
     Route: 048
     Dates: start: 20071119, end: 20080601
  2. HYDROXYZINE [Suspect]
     Route: 048
     Dates: start: 20070618
  3. CLONAZEPAM [Suspect]
     Dosage: DAILY DOSE:10DROP-TEXT:EVERY DAY 10 DROPS
     Dates: start: 20071119
  4. TRAMADOL HCL [Concomitant]
     Route: 048
     Dates: start: 20070618
  5. DEXTROPROPOXYPHENE HYDROCHLORIDE [Concomitant]
     Route: 048
     Dates: start: 20080220, end: 20080601
  6. ESCITALOPRAM OXALATE [Concomitant]
     Route: 048
     Dates: start: 20071119

REACTIONS (1)
  - FALL [None]
